FAERS Safety Report 7991006-4 (Version None)
Quarter: 2011Q4

REPORT INFORMATION
  Report Type: 
  Country: None (occurrence: None)
  Receive Date: 20111219
  Receipt Date: 20111216
  Transmission Date: 20120403
  Serious: Yes (Life-Threatening, Hospitalization)
  Sender: FDA-Public Use
  Company Number: SE-CEPHALON-2011006276

PATIENT
  Sex: Male
  Weight: 88 kg

DRUGS (7)
  1. OBINUTUZUMAB [Suspect]
     Indication: NON-HODGKIN'S LYMPHOMA
     Route: 042
     Dates: start: 20110517
  2. METOPROLOL [Concomitant]
  3. ASPIRIN [Concomitant]
  4. NITROLINGUAL [Concomitant]
  5. BENDAMUSTINE HCL [Suspect]
     Indication: NON-HODGKIN'S LYMPHOMA
     Route: 042
     Dates: start: 20110517, end: 20111004
  6. AMLODIPINE [Concomitant]
  7. NITROMEX [Concomitant]

REACTIONS (2)
  - PYREXIA [None]
  - MYOCARDIAL INFARCTION [None]
